FAERS Safety Report 13202463 (Version 4)
Quarter: 2017Q3

REPORT INFORMATION
  Report Type: Spontaneous
  Country: US (occurrence: US)
  Receive Date: 20170209
  Receipt Date: 20170817
  Transmission Date: 20171127
  Serious: No
  Sender: FDA-Public Use
  Company Number: US-PFIZER INC-2017055263

PATIENT
  Sex: Female

DRUGS (1)
  1. LYRICA [Suspect]
     Active Substance: PREGABALIN
     Indication: FIBROMYALGIA
     Dosage: UNK
     Dates: start: 2000

REACTIONS (5)
  - Parosmia [Unknown]
  - Swelling [Unknown]
  - Fall [Unknown]
  - Muscular weakness [Unknown]
  - Drug ineffective [Unknown]
